FAERS Safety Report 9725910 (Version 2)
Quarter: 2013Q4

REPORT INFORMATION
  Report Type: Spontaneous
  Country: US (occurrence: None)
  Receive Date: 20131127
  Receipt Date: 20131219
  Transmission Date: 20140711
  Serious: Yes (Other)
  Sender: FDA-Public Use
  Company Number: SYM-2013-11685

PATIENT
  Age: 54 Year
  Sex: Male

DRUGS (1)
  1. XENAZINE [Suspect]
     Indication: HUNTINGTON^S DISEASE
     Dosage: 12..5MG IN AM AND 25MG AT BEDTIME, ORAL
     Route: 048
     Dates: start: 20130923

REACTIONS (6)
  - Hypersomnia [None]
  - Depressed level of consciousness [None]
  - Cognitive disorder [None]
  - Disorientation [None]
  - Nasopharyngitis [None]
  - Dysphagia [None]
